FAERS Safety Report 23345873 (Version 2)
Quarter: 2024Q1

REPORT INFORMATION
  Report Type: Spontaneous
  Country: US (occurrence: US)
  Receive Date: 20231228
  Receipt Date: 20240227
  Transmission Date: 20240409
  Serious: Yes (Other)
  Sender: FDA-Public Use
  Company Number: US-BAYER-2023A183774

PATIENT
  Sex: Male

DRUGS (1)
  1. JIVI [Suspect]
     Active Substance: DAMOCTOCOG ALFA PEGOL
     Indication: Complement deficiency disease
     Dosage: 3200 IU, EVERY 48 HOURS
     Route: 042
     Dates: start: 202307

REACTIONS (1)
  - Haemorrhage [None]
